FAERS Safety Report 10269864 (Version 1)
Quarter: 2014Q2

REPORT INFORMATION
  Report Type: Spontaneous
  Country: GB (occurrence: None)
  Receive Date: 20140625
  Receipt Date: 20140625
  Transmission Date: 20141212
  Serious: Yes (Other)
  Sender: FDA-Public Use
  Company Number: 2014-19800

PATIENT
  Sex: 0

DRUGS (1)
  1. EYLEA [Suspect]

REACTIONS (1)
  - Eye injury [None]
